FAERS Safety Report 11196698 (Version 1)
Quarter: 2015Q2

REPORT INFORMATION
  Report Type: Spontaneous
  Country: IE (occurrence: IE)
  Receive Date: 20150617
  Receipt Date: 20150617
  Transmission Date: 20150821
  Serious: Yes (Other)
  Sender: FDA-Public Use
  Company Number: IE-PFIZER INC-2015200687

PATIENT

DRUGS (1)
  1. LUSTRAL [Suspect]
     Active Substance: SERTRALINE HYDROCHLORIDE

REACTIONS (1)
  - Intestinal perforation [Unknown]
